FAERS Safety Report 13871514 (Version 1)
Quarter: 2017Q3

REPORT INFORMATION
  Report Type: Spontaneous
  Country: US (occurrence: US)
  Receive Date: 20170814
  Receipt Date: 20170814
  Transmission Date: 20171127
  Serious: Yes (Death, Life-Threatening, Disabling, Other)
  Sender: FDA-Public Use
  Company Number: None

PATIENT
  Sex: Male

DRUGS (16)
  1. JANUEVIA [Concomitant]
  2. PLAVIX [Concomitant]
     Active Substance: CLOPIDOGREL BISULFATE
  3. CHELATION EDTA [Concomitant]
  4. HYDRACODONE [Concomitant]
  5. ASPIRIN. [Concomitant]
     Active Substance: ASPIRIN
  6. PALMETTO [Concomitant]
  7. VANCOMYCIN [Suspect]
     Active Substance: VANCOMYCIN
     Indication: PRODUCT USED FOR UNKNOWN INDICATION
     Dosage: ?          QUANTITY:17 INJECTION(S);OTHER ROUTE:THROUGH IV DRIP?
     Route: 041
     Dates: start: 20170324, end: 20170330
  8. OXYCODONE [Concomitant]
     Active Substance: OXYCODONE
  9. SPIRONOLACTONE. [Concomitant]
     Active Substance: SPIRONOLACTONE
  10. COLLAGENASE [Concomitant]
     Active Substance: COLLAGENASE CLOSTRIDIUM HISTOLYTICUM
  11. ASHWAGANDA [Concomitant]
  12. METPHORMEN [Concomitant]
  13. HEPARIN SOD [Suspect]
     Active Substance: HEPARIN SODIUM
     Indication: PRODUCT USED FOR UNKNOWN INDICATION
     Dosage: ?          QUANTITY:5 INJECTION(S);OTHER ROUTE:IV PUSH?
     Route: 042
     Dates: start: 20170325, end: 20170404
  14. GLIMIPERIDE [Concomitant]
     Active Substance: GLIMEPIRIDE
  15. LASIKS [Concomitant]
  16. CARVIDOLAL [Concomitant]

REACTIONS (15)
  - Cardiac failure congestive [None]
  - Hypersensitivity [None]
  - Pain [None]
  - Skin discolouration [None]
  - Dysuria [None]
  - Hypophagia [None]
  - Overdose [None]
  - Chronic obstructive pulmonary disease [None]
  - Pulmonary oedema [None]
  - Cerebrovascular accident [None]
  - Myocardial infarction [None]
  - Pneumonia [None]
  - Renal impairment [None]
  - Oedema peripheral [None]
  - Malaise [None]

NARRATIVE: CASE EVENT DATE: 20170325
